FAERS Safety Report 11777449 (Version 5)
Quarter: 2017Q1

REPORT INFORMATION
  Report Type: Report from Study
  Country: ES (occurrence: ES)
  Receive Date: 20151125
  Receipt Date: 20170310
  Transmission Date: 20170428
  Serious: Yes (Death, Hospitalization, Other)
  Sender: FDA-Public Use
  Company Number: ES-SA-2015SA190249

PATIENT
  Age: 85 Year
  Sex: Female

DRUGS (16)
  1. TRASTUZUMAB [Suspect]
     Active Substance: TRASTUZUMAB
     Indication: HER-2 POSITIVE BREAST CANCER
     Dosage: 8MG/KG?LOADING DOSE
     Route: 042
     Dates: start: 20121127, end: 20121127
  2. BEGLAN [Concomitant]
     Dosage: DOSE: 1 (UNITS NOT REPORTED)
  3. PSYLLIUM [Concomitant]
     Active Substance: PLANTAGO SEED
  4. FENTANILO [Concomitant]
     Active Substance: FENTANYL
     Dosage: 1/72 H
  5. INALACOR [Concomitant]
     Dosage: DOSE: 1 (UNITS NOT REPORTED)
  6. FUROSEMIDE. [Concomitant]
     Active Substance: FUROSEMIDE
     Dates: start: 20150522, end: 20150529
  7. STILNOX [Concomitant]
     Active Substance: ZOLPIDEM TARTRATE
     Indication: SLEEP DISORDER
     Dates: start: 20121116
  8. ENALAPRIL [Concomitant]
     Active Substance: ENALAPRIL
     Dates: start: 20150522, end: 20150529
  9. DOCETAXEL. [Suspect]
     Active Substance: DOCETAXEL
     Indication: HER-2 POSITIVE BREAST CANCER
     Route: 042
     Dates: start: 20121127, end: 20121127
  10. PERTUZUMAB [Suspect]
     Active Substance: PERTUZUMAB
     Indication: HER-2 POSITIVE BREAST CANCER
     Dosage: LOADING DOSE
     Route: 042
     Dates: start: 20121127, end: 20121127
  11. PERTUZUMAB [Suspect]
     Active Substance: PERTUZUMAB
     Indication: HER-2 POSITIVE BREAST CANCER
     Dosage: MAINTENANCE DOSE
     Route: 042
     Dates: start: 20121218, end: 20150608
  12. SERC [Concomitant]
     Active Substance: BETAHISTINE HYDROCHLORIDE
     Dates: start: 199601
  13. PANTOPRAZOL [Concomitant]
     Active Substance: PANTOPRAZOLE SODIUM
     Dates: start: 20150522, end: 20150529
  14. DOCETAXEL. [Suspect]
     Active Substance: DOCETAXEL
     Indication: HER-2 POSITIVE BREAST CANCER
     Route: 042
     Dates: start: 20130312, end: 20130312
  15. TRASTUZUMAB [Suspect]
     Active Substance: TRASTUZUMAB
     Indication: HER-2 POSITIVE BREAST CANCER
     Dosage: 6MG/KG?MAINTENANCE DOSE
     Route: 042
     Dates: start: 20121218, end: 20150608
  16. ASPIRIN. [Concomitant]
     Active Substance: ASPIRIN
     Dates: start: 20150522, end: 20150529

REACTIONS (6)
  - Cardiac failure congestive [Fatal]
  - Cardiac failure [Recovered/Resolved with Sequelae]
  - Respiratory tract infection [Recovered/Resolved]
  - Asthma [Recovered/Resolved]
  - Asthma [Recovered/Resolved]
  - Respiratory tract infection [Recovered/Resolved]

NARRATIVE: CASE EVENT DATE: 20150522
